FAERS Safety Report 10451269 (Version 2)
Quarter: 2014Q4

REPORT INFORMATION
  Report Type: Spontaneous
  Country: US (occurrence: US)
  Receive Date: 20140912
  Receipt Date: 20141016
  Transmission Date: 20150528
  Serious: No
  Sender: FDA-Public Use
  Company Number: US-PFIZER INC-2014252969

PATIENT
  Age: 8 Year
  Sex: Female
  Weight: 21 kg

DRUGS (2)
  1. QUILLIVANT XR [Suspect]
     Active Substance: METHYLPHENIDATE HYDROCHLORIDE
     Dosage: 3 ML, 1X/DAY
     Dates: end: 20140829
  2. QUILLIVANT XR [Suspect]
     Active Substance: METHYLPHENIDATE HYDROCHLORIDE
     Dosage: 4 ML, 1X/DAY
     Dates: start: 20140829, end: 2014

REACTIONS (4)
  - Decreased appetite [Unknown]
  - Weight gain poor [Unknown]
  - Drug effect decreased [Unknown]
  - Disturbance in attention [Unknown]

NARRATIVE: CASE EVENT DATE: 2014
